FAERS Safety Report 8831411 (Version 1)
Quarter: 2012Q4

REPORT INFORMATION
  Report Type: 
  Country: ES (occurrence: ES)
  Receive Date: 20121009
  Receipt Date: 20121009
  Transmission Date: 20130627
  Serious: Yes (Other)
  Sender: FDA-Public Use
  Company Number: ES-WATSON-2012-16964

PATIENT
  Age: 50 Year
  Sex: Female

DRUGS (1)
  1. PREDNISONE (UNKNOWN) [Suspect]
     Indication: ERYTHEMA NODOSUM
     Dosage: 30 mg, single
     Route: 048

REACTIONS (1)
  - Dermatitis contact [Recovered/Resolved]
